FAERS Safety Report 8599238-1 (Version None)
Quarter: 2012Q3

REPORT INFORMATION
  Report Type: 
  Country: None (occurrence: None)
  Receive Date: 20120816
  Receipt Date: 20120427
  Transmission Date: 20120928
  Serious: No
  Sender: FDA-Public Use
  Company Number: US-AMGEN-USASP2012011782

PATIENT
  Age: 71 Year
  Sex: Female
  Weight: 68.027 kg

DRUGS (9)
  1. AMBIEN [Concomitant]
     Dosage: UNK
  2. PREMARIN [Concomitant]
     Dosage: UNK
  3. PROZAC [Concomitant]
     Dosage: UNK
  4. ORUVAIL [Concomitant]
     Dosage: UNK
  5. CHROMAGEN [Concomitant]
     Dosage: UNK
  6. CYCLOSPORINE [Concomitant]
     Dosage: UNK
  7. ACIPHEX [Concomitant]
     Dosage: UNK
  8. NEUPOGEN [Suspect]
     Indication: NEUTROPENIA
     Dosage: 300 MUG, QWK
     Route: 058
     Dates: start: 20090623
  9. DILTIAZEM [Concomitant]
     Dosage: UNK

REACTIONS (3)
  - THERAPEUTIC RESPONSE DECREASED [None]
  - BONE PAIN [None]
  - NEUTROPHIL COUNT DECREASED [None]
